FAERS Safety Report 19666317 (Version 3)
Quarter: 2021Q4

REPORT INFORMATION
  Report Type: Spontaneous
  Country: RU (occurrence: RU)
  Receive Date: 20210806
  Receipt Date: 20211008
  Transmission Date: 20220303
  Serious: Yes (Other)
  Sender: FDA-Public Use
  Company Number: RU-BRISTOL-MYERS SQUIBB COMPANY-BMS-2021-076271

PATIENT
  Sex: Female

DRUGS (2)
  1. ELIQUIS [Suspect]
     Active Substance: APIXABAN
     Indication: Thrombosis prophylaxis
     Dosage: SHE DIVIDED A TABLET OF 5 MG FOR IN TWO PARTS AND TOOK IT TWICE DAILY
     Route: 048
     Dates: start: 202107
  2. ELIQUIS [Suspect]
     Active Substance: APIXABAN
     Dosage: 2.5 MILLIGRAM, BID
     Route: 048

REACTIONS (5)
  - Arrhythmia [Unknown]
  - Drug ineffective [Unknown]
  - Headache [Recovered/Resolved]
  - Treatment noncompliance [Unknown]
  - Cough [Unknown]
